FAERS Safety Report 6369793-0 (Version None)
Quarter: 2009Q3

REPORT INFORMATION
  Report Type: 
  Country: None (occurrence: None)
  Receive Date: 20090922
  Receipt Date: 20090922
  Transmission Date: 20100115
  Serious: Yes (Hospitalization)
  Sender: FDA-Public Use
  Company Number: None

PATIENT
  Age: 60 Year
  Sex: Male
  Weight: 85.5 kg

DRUGS (4)
  1. TAXOL [Suspect]
     Indication: LUNG NEOPLASM MALIGNANT
     Dosage: WEEKLY IV
     Route: 042
     Dates: start: 20090824, end: 20090915
  2. CARBOPLATIN [Suspect]
     Indication: LUNG NEOPLASM MALIGNANT
     Dosage: WEEKLY IV
     Route: 042
     Dates: start: 20090824, end: 20090915
  3. DASATINIB [Suspect]
     Indication: LUNG NEOPLASM MALIGNANT
     Dosage: 50 MG DAILY P.O.
     Route: 048
     Dates: start: 20090824, end: 20090915
  4. RADIATION 1.8 GG DAILY MOX-7R1 [Suspect]
     Indication: LUNG NEOPLASM MALIGNANT
     Dates: start: 20090824, end: 20090915

REACTIONS (4)
  - CHEST PAIN [None]
  - DRUG HYPERSENSITIVITY [None]
  - MYOCARDIAL ISCHAEMIA [None]
  - TROPONIN INCREASED [None]
